FAERS Safety Report 14661609 (Version 9)
Quarter: 2019Q1

REPORT INFORMATION
  Report Type: Spontaneous
  Country: ES (occurrence: ES)
  Receive Date: 20180320
  Receipt Date: 20190118
  Transmission Date: 20190417
  Serious: Yes (Death, Hospitalization)
  Sender: FDA-Public Use
  Company Number: ES-PFIZER INC-2018115141

PATIENT
  Age: 72 Year
  Sex: Female

DRUGS (3)
  1. BRINTELLIX [Suspect]
     Active Substance: VORTIOXETINE HYDROBROMIDE
     Dosage: UNK
     Route: 048
  2. BRINTELLIX [Suspect]
     Active Substance: VORTIOXETINE HYDROBROMIDE
     Dosage: 10 MG, QD
     Route: 048
  3. BRINTELLIX [Suspect]
     Active Substance: VORTIOXETINE HYDROBROMIDE
     Indication: DEPRESSION
     Dosage: 5 MG, 1 VEZ AL DIA | DOSIS UNIDAD FRECUENCIA: 5 MG-MILIGRAMOS | DOSIS POR TOMA: 5 MG-MILIGRAMOS...
     Route: 048
     Dates: start: 20160310, end: 20160402

REACTIONS (1)
  - Hyponatraemia [Fatal]

NARRATIVE: CASE EVENT DATE: 20160402
